FAERS Safety Report 20012979 (Version 1)
Quarter: 2021Q4

REPORT INFORMATION
  Report Type: Spontaneous
  Country: US (occurrence: US)
  Receive Date: 20211029
  Receipt Date: 20211029
  Transmission Date: 20220303
  Serious: No
  Sender: FDA-Public Use
  Company Number: US-PFIZER INC-202101376234

PATIENT
  Age: 58 Year
  Sex: Female

DRUGS (1)
  1. IBRANCE [Suspect]
     Active Substance: PALBOCICLIB
     Dosage: 100 MG, CYCLIC (EVERY OTHER DAY ALTERNATING WITH 1 TABLET OF 75 MG FOR 21 DAYS ON AND 7 DAYS OFF)
     Route: 048

REACTIONS (6)
  - White blood cell count decreased [Unknown]
  - Red blood cell count decreased [Unknown]
  - Tumour marker increased [Unknown]
  - Neoplasm progression [Unknown]
  - Off label use [Unknown]
  - Intentional product misuse [Unknown]
